FAERS Safety Report 5550130-6 (Version None)
Quarter: 2007Q4

REPORT INFORMATION
  Report Type: 
  Country: None (occurrence: None)
  Receive Date: 20071212
  Receipt Date: 20070423
  Transmission Date: 20080405
  Serious: No
  Sender: FDA-Public Use
  Company Number: US-AMGEN-KDL221457

PATIENT
  Sex: Female

DRUGS (3)
  1. ENBREL [Suspect]
     Indication: RHEUMATOID ARTHRITIS
     Route: 058
     Dates: start: 20070201
  2. PLAQUENIL [Concomitant]
     Route: 048
     Dates: start: 20060401
  3. METHOTREXATE [Concomitant]
     Route: 048
     Dates: start: 20070201

REACTIONS (7)
  - COUGH [None]
  - EYE SWELLING [None]
  - FEELING COLD [None]
  - HEEL NODULE EXCISION [None]
  - NASOPHARYNGITIS [None]
  - RESPIRATORY TRACT CONGESTION [None]
  - TOE AMPUTATION [None]
